FAERS Safety Report 8600495-3 (Version None)
Quarter: 2012Q3

REPORT INFORMATION
  Report Type: 
  Country: None (occurrence: None)
  Receive Date: 20120808
  Receipt Date: 20120808
  Transmission Date: 20120928
  Serious: Yes (Other)
  Sender: FDA-Public Use
  Company Number: None

PATIENT
  Sex: Male
  Weight: 120.6568 kg

DRUGS (2)
  1. FINASTERIDE [Suspect]
     Indication: POLLAKIURIA
     Dosage: 1 DAILY
  2. FLOMAX [Suspect]
     Indication: POLLAKIURIA
     Dosage: 1 DAILY

REACTIONS (4)
  - ERECTILE DYSFUNCTION [None]
  - DIZZINESS [None]
  - EJACULATION FAILURE [None]
  - LOSS OF LIBIDO [None]
